FAERS Safety Report 10555337 (Version 1)
Quarter: 2014Q4

REPORT INFORMATION
  Report Type: Spontaneous
  Country: US (occurrence: US)
  Receive Date: 20141030
  Receipt Date: 20141030
  Transmission Date: 20150529
  Serious: Yes (Other)
  Sender: FDA-Public Use
  Company Number: US-BAYER-2014-156517

PATIENT
  Age: 67 Year
  Sex: Female
  Weight: 65.76 kg

DRUGS (2)
  1. RID 1-2-3 SYSTEM [Suspect]
     Active Substance: PIPERONYL BUTOXIDE\PYRETHRUM EXTRACT
     Indication: ACARODERMATITIS
     Dosage: UNK, ONCE
     Route: 047
     Dates: start: 20141015, end: 20141015
  2. RID 1-2-3 SYSTEM [Suspect]
     Active Substance: PIPERONYL BUTOXIDE\PYRETHRUM EXTRACT
     Indication: ACARODERMATITIS
     Dosage: UNK, ONCE
     Dates: start: 20141015, end: 20141015

REACTIONS (5)
  - Medication error [None]
  - Eye haemorrhage [Recovered/Resolved]
  - Vision blurred [Not Recovered/Not Resolved]
  - Eye burns [Not Recovered/Not Resolved]
  - Accidental exposure to product [None]

NARRATIVE: CASE EVENT DATE: 20141015
